FAERS Safety Report 22531415 (Version 5)
Quarter: 2023Q4

REPORT INFORMATION
  Report Type: Spontaneous
  Country: US (occurrence: US)
  Receive Date: 20230607
  Receipt Date: 20231128
  Transmission Date: 20240109
  Serious: No
  Sender: FDA-Public Use
  Company Number: US-PFIZER INC-PV202300098498

PATIENT
  Age: 7 Year
  Sex: Female

DRUGS (2)
  1. OXBRYTA [Suspect]
     Active Substance: VOXELOTOR
     Dosage: 3 TABLETS FOR ORAL SUSPENSION
     Route: 048
     Dates: start: 202305
  2. OXBRYTA [Suspect]
     Active Substance: VOXELOTOR
     Dosage: 900MG, 300MG/3 TABLETS BY MOUTH ONCE DAILY
     Route: 048

REACTIONS (3)
  - Gastrointestinal disorder [Unknown]
  - Nausea [Not Recovered/Not Resolved]
  - Abdominal discomfort [Unknown]

NARRATIVE: CASE EVENT DATE: 20230101
